FAERS Safety Report 18333639 (Version 2)
Quarter: 2020Q4

REPORT INFORMATION
  Report Type: Spontaneous
  Country: US (occurrence: US)
  Receive Date: 20201001
  Receipt Date: 20201005
  Transmission Date: 20210113
  Serious: Yes (Hospitalization)
  Sender: FDA-Public Use
  Company Number: US-ROCHE-2686935

PATIENT
  Age: 72 Year
  Sex: Male
  Weight: 84.6 kg

DRUGS (5)
  1. VENETOCLAX. [Suspect]
     Active Substance: VENETOCLAX
     Indication: CHRONIC LYMPHOCYTIC LEUKAEMIA
     Dosage: WEEK 1 WAS 20 MG, WEEK 2 WAS 50MG, WEEK  3 WAS 100 MG, WEEK 4 WAS 200MG, WEEK 5 AND BEYOND 400 MG
     Route: 048
     Dates: start: 202001
  2. VENETOCLAX. [Suspect]
     Active Substance: VENETOCLAX
     Route: 048
     Dates: start: 20200309, end: 20200928
  3. SEPTRA DS [Concomitant]
     Active Substance: SULFAMETHOXAZOLE\TRIMETHOPRIM
  4. GAZYVA [Suspect]
     Active Substance: OBINUTUZUMAB
     Indication: CHRONIC LYMPHOCYTIC LEUKAEMIA
     Dosage: (100 MG ON DAY 1, 900 MG ON DAY 2, 1000 MG ON DAY 8 AND 15 EVERY 28 DAY CYCLE FOR 6 CYCLES; DAY 1 10
     Route: 042
     Dates: start: 202001, end: 202007
  5. ACYCLOVIR. [Concomitant]
     Active Substance: ACYCLOVIR

REACTIONS (5)
  - Atrial fibrillation [Not Recovered/Not Resolved]
  - Hypertension [Not Recovered/Not Resolved]
  - Dizziness [Unknown]
  - Rash [Unknown]
  - Heart rate increased [Recovering/Resolving]

NARRATIVE: CASE EVENT DATE: 2020
